FAERS Safety Report 15259797 (Version 1)
Quarter: 2018Q3

REPORT INFORMATION
  Report Type: Spontaneous
  Country: US (occurrence: US)
  Receive Date: 20180719
  Receipt Date: 20180719
  Transmission Date: 20181010
  Serious: Yes (Hospitalization)
  Sender: FDA-Public Use
  Company Number: None

PATIENT
  Age: 24 Year
  Sex: Female
  Weight: 58.9 kg

DRUGS (1)
  1. PAZOPANIB (GW786034) [Suspect]
     Active Substance: PAZOPANIB
     Dates: end: 20180627

REACTIONS (8)
  - Dyspnoea [None]
  - Somnolence [None]
  - Metastases to pleura [None]
  - Hypoxia [None]
  - Pain [None]
  - Disease progression [None]
  - Haemoptysis [None]
  - Confusional state [None]

NARRATIVE: CASE EVENT DATE: 20180706
